FAERS Safety Report 9441023 (Version 1)
Quarter: 2013Q3

REPORT INFORMATION
  Report Type: Spontaneous
  Country: US (occurrence: None)
  Receive Date: 20130801
  Receipt Date: 20130801
  Transmission Date: 20140515
  Serious: Yes (Other)
  Sender: FDA-Public Use
  Company Number: 2013TP000438

PATIENT
  Age: 84 Year
  Sex: Female

DRUGS (3)
  1. LIDODERM (5 PCT) [Suspect]
     Indication: POST HERPETIC NEURALGIA
     Route: 061
  2. ANTIHYPERTENSIVES [Concomitant]
  3. DRUG FOR OBSTRUCTIVE AIRWAY DISEASES [Concomitant]

REACTIONS (4)
  - Hip surgery [None]
  - Balance disorder [None]
  - Sepsis [None]
  - Renal disorder [None]
